FAERS Safety Report 5224721-6 (Version None)
Quarter: 2007Q1

REPORT INFORMATION
  Report Type: 
  Country: None (occurrence: None)
  Receive Date: 20070131
  Receipt Date: 20070124
  Transmission Date: 20070707
  Serious: Yes (Hospitalization)
  Sender: FDA-Public Use
  Company Number: FRWYE336425JAN07

PATIENT
  Age: 55 Year
  Sex: Male

DRUGS (8)
  1. TAZOCILLINE [Suspect]
     Indication: STAPHYLOCOCCAL INFECTION
     Route: 042
     Dates: start: 20061019, end: 20061024
  2. VANCOMYCIN [Suspect]
     Indication: STAPHYLOCOCCAL INFECTION
     Route: 042
     Dates: start: 20061019
  3. IMOVANE [Concomitant]
     Dosage: UNKNOWN
  4. CETORNAN [Concomitant]
     Dosage: UNKNOWN
  5. NORSET [Concomitant]
     Dosage: UNKNOWN
  6. NEXIUM [Concomitant]
     Dosage: UNKNOWN
  7. GENTAMICIN SULFATE [Suspect]
     Indication: STAPHYLOCOCCAL INFECTION
     Route: 030
     Dates: start: 20061019, end: 20061022
  8. EQUANIL [Concomitant]
     Dosage: UNKNOWN

REACTIONS (1)
  - BLISTER [None]
